FAERS Safety Report 17039475 (Version 5)
Quarter: 2020Q3

REPORT INFORMATION
  Report Type: Spontaneous
  Country: US (occurrence: US)
  Receive Date: 20191115
  Receipt Date: 20200710
  Transmission Date: 20201102
  Serious: Yes (Other)
  Sender: FDA-Public Use
  Company Number: US-LEXICON PHARMACEUTICALS, INC-19-1606-01003

PATIENT
  Age: 71 Year
  Sex: Female

DRUGS (19)
  1. FEXOFENADINE [Concomitant]
     Active Substance: FEXOFENADINE HYDROCHLORIDE
  2. LEVOTHYROXINE. [Concomitant]
     Active Substance: LEVOTHYROXINE
  3. BETAMETHASONE. [Concomitant]
     Active Substance: BETAMETHASONE
  4. OXYGEN. [Concomitant]
     Active Substance: OXYGEN
  5. POTASSIUM [Concomitant]
     Active Substance: POTASSIUM
  6. XERMELO [Suspect]
     Active Substance: TELOTRISTAT ETHYL
     Indication: CARCINOID SYNDROME
     Route: 048
     Dates: start: 20191004
  7. OMEPRAZOLE. [Concomitant]
     Active Substance: OMEPRAZOLE
  8. TYLENOL [Concomitant]
     Active Substance: ACETAMINOPHEN
  9. CALCIUM 500 [Concomitant]
  10. LASIX [Concomitant]
     Active Substance: FUROSEMIDE
  11. XERMELO [Suspect]
     Active Substance: TELOTRISTAT ETHYL
     Indication: NEUROENDOCRINE TUMOUR
  12. MELATONIN [Concomitant]
     Active Substance: MELATONIN
  13. ADVIL [Concomitant]
     Active Substance: IBUPROFEN
  14. CREON [Concomitant]
     Active Substance: PANCRELIPASE AMYLASE\PANCRELIPASE LIPASE\PANCRELIPASE PROTEASE
  15. METRONIDAZOLE. [Concomitant]
     Active Substance: METRONIDAZOLE
  16. ASPIRIN. [Concomitant]
     Active Substance: ASPIRIN
  17. TRAMADOL. [Concomitant]
     Active Substance: TRAMADOL
  18. SOMATULINE DEPOT [Concomitant]
     Active Substance: LANREOTIDE ACETATE
  19. MULTIVITAMIN [Concomitant]
     Active Substance: VITAMINS

REACTIONS (8)
  - Radiotherapy [Unknown]
  - Abdominal distension [Unknown]
  - Diarrhoea [Unknown]
  - Dyspnoea exertional [Unknown]
  - Dyspnoea [Not Recovered/Not Resolved]
  - Oedema peripheral [Not Recovered/Not Resolved]
  - Catheterisation cardiac [Unknown]
  - Skin discolouration [Unknown]

NARRATIVE: CASE EVENT DATE: 201910
